FAERS Safety Report 4487987-6 (Version None)
Quarter: 2004Q4

REPORT INFORMATION
  Report Type: 
  Country: None (occurrence: None)
  Receive Date: 20041028
  Receipt Date: 20031015
  Transmission Date: 20050328
  Serious: Yes (Death)
  Sender: FDA-Public Use
  Company Number: BE-JNJFOC-20031000423

PATIENT
  Sex: Female

DRUGS (38)
  1. PROPULSID [Suspect]
     Dosage: 3 OR 4 TIMES A DAY.
     Route: 065
  2. REDOMEX [Concomitant]
  3. REDOMEX [Concomitant]
     Indication: DEPRESSION
  4. TRAZOLAN [Concomitant]
     Indication: DEPRESSION
  5. SOLIAN [Concomitant]
     Indication: DEPRESSION
  6. TRANXENE [Concomitant]
     Indication: DEPRESSION
  7. XANTHIUM [Concomitant]
  8. EUPHYLLIUM [Concomitant]
  9. LOMUDAL [Concomitant]
  10. DUOVENT [Concomitant]
  11. DUOVENT [Concomitant]
  12. NEURONTIN [Concomitant]
  13. TEGRETOL [Concomitant]
  14. L-THYROXYNE [Concomitant]
     Dosage: 150 GAMMA.
  15. LYSOMUCIL [Concomitant]
  16. CIPRAMIL [Concomitant]
     Dosage: 40MG X 1.5CO.
  17. DOLZAM [Concomitant]
  18. DOMINAL [Concomitant]
  19. LORAMET [Concomitant]
  20. PANTOPRAZOLE SODIUM [Concomitant]
  21. COMBIVENT [Concomitant]
  22. COMBIVENT [Concomitant]
     Dosage: 1.2.1 PUFFS.
  23. FERRICURE [Concomitant]
     Dosage: 2X 20 DROPS WITH MEAL.
  24. AREDIA [Concomitant]
  25. GLUCOBAY [Concomitant]
     Indication: HYPOGLYCAEMIA
  26. SINTROM [Concomitant]
  27. MS CONTIN [Concomitant]
  28. CONTRAMAL [Concomitant]
     Dosage: 20-30 DROPS 4 TO 5 TIMES/DAILY.
  29. VALTRAN [Concomitant]
  30. VALTRAN [Concomitant]
     Dosage: 20-30 DROPS 4 TO 5 TIMES/DAILY.
  31. DEANXIT [Concomitant]
  32. DEANXIT [Concomitant]
  33. SEDINAL [Concomitant]
  34. SEDINAL [Concomitant]
  35. SEDINAL [Concomitant]
  36. FLITOXIDE [Concomitant]
     Dosage: 500MCG DISKUS 2X1 PUFF.
     Dates: start: 20021014
  37. INFLUVAC S [Concomitant]
     Dates: start: 20021014
  38. DIPIDOLOR [Concomitant]
     Dosage: 2 PHIALS IM
     Route: 030

REACTIONS (17)
  - BRONCHIAL INFECTION [None]
  - BRONCHOPNEUMONIA [None]
  - CARDIAC ARREST [None]
  - CARDIO-RESPIRATORY ARREST [None]
  - CHRONIC RESPIRATORY FAILURE [None]
  - DEPRESSION [None]
  - EMPHYSEMA [None]
  - HYPOGLYCAEMIA [None]
  - LACERATION [None]
  - MALAISE [None]
  - NICOTINE DEPENDENCE [None]
  - RESPIRATORY ARREST [None]
  - RESPIRATORY FAILURE [None]
  - SINUSITIS [None]
  - SUICIDE ATTEMPT [None]
  - SUPERINFECTION [None]
  - VOMITING PSYCHOGENIC [None]
